FAERS Safety Report 21106240 (Version 2)
Quarter: 2022Q3

REPORT INFORMATION
  Report Type: Spontaneous
  Country: CN (occurrence: CN)
  Receive Date: 20220720
  Receipt Date: 20220726
  Transmission Date: 20221027
  Serious: Yes (Other)
  Sender: FDA-Public Use
  Company Number: CN-BRISTOL-MYERS SQUIBB COMPANY-2022-073533

PATIENT
  Sex: Female
  Weight: 49 kg

DRUGS (4)
  1. OPDIVO [Suspect]
     Active Substance: NIVOLUMAB
     Indication: Tongue neoplasm malignant stage unspecified
     Dosage: 0.2G+0.9% SODIUM CHLORIDE INJECTION 100ML INTRAVENOUS DRIP?ONCE
     Route: 041
     Dates: start: 20220630, end: 20220630
  2. DOCETAXEL [Suspect]
     Active Substance: DOCETAXEL
     Indication: Tongue neoplasm malignant stage unspecified
     Dosage: + 0.9% SODIUM CHLORIDE INJECTION 100ML INTRAVENOUS?DRIP ONCE
     Route: 041
     Dates: start: 20220630, end: 20220630
  3. DOCETAXEL [Suspect]
     Active Substance: DOCETAXEL
     Dosage: + 0.9% SODIUM CHLORIDE INJECTION 500ML INTRAVENOUS DRIP ONCE
     Route: 041
     Dates: start: 20220630, end: 20220630
  4. CISPLATIN [Suspect]
     Active Substance: CISPLATIN
     Indication: Tongue neoplasm malignant stage unspecified
     Dosage: 35MG+ 0.9% SODIUM?CHLORIDE INJECTION 500ML INTRAVENOUS DRIP QD D1-3
     Route: 041
     Dates: start: 20220630, end: 20220702

REACTIONS (3)
  - Diarrhoea [Recovering/Resolving]
  - Myelosuppression [Recovering/Resolving]
  - Intentional product use issue [Unknown]

NARRATIVE: CASE EVENT DATE: 20220704
